FAERS Safety Report 8064758-5 (Version None)
Quarter: 2012Q1

REPORT INFORMATION
  Report Type: 
  Country: None (occurrence: None)
  Receive Date: 20120124
  Receipt Date: 20120116
  Transmission Date: 20120608
  Serious: Yes (Other)
  Sender: FDA-Public Use
  Company Number: US-AMGEN-USASP2012002915

PATIENT
  Sex: Female

DRUGS (2)
  1. ENBREL [Suspect]
     Indication: RHEUMATOID ARTHRITIS
     Dosage: UNK
     Dates: start: 20100610
  2. METHOTREXATE [Concomitant]

REACTIONS (5)
  - CHEST DISCOMFORT [None]
  - SJOGREN'S SYNDROME [None]
  - ALOPECIA [None]
  - COUGH [None]
  - PALPITATIONS [None]
